FAERS Safety Report 5911414-2 (Version None)
Quarter: 2008Q4

REPORT INFORMATION
  Report Type: 
  Country: None (occurrence: None)
  Receive Date: 20081007
  Receipt Date: 20080925
  Transmission Date: 20090506
  Serious: Yes (Other)
  Sender: FDA-Public Use
  Company Number: CA-PFIZER INC-2008078597

PATIENT
  Age: 67 Year
  Sex: Male

DRUGS (5)
  1. NEURONTIN [Suspect]
     Indication: BACK PAIN
     Route: 048
     Dates: start: 20071201
  2. MICARDIS [Concomitant]
  3. LIPITOR [Concomitant]
  4. ACETYLSALICYLIC ACID SRT [Concomitant]
  5. NIACIN [Concomitant]

REACTIONS (4)
  - DISTURBANCE IN ATTENTION [None]
  - DIZZINESS [None]
  - SLEEP APNOEA SYNDROME [None]
  - SOMNOLENCE [None]
